FAERS Safety Report 15723674 (Version 1)
Quarter: 2018Q4

REPORT INFORMATION
  Report Type: Spontaneous
  Country: ES (occurrence: ES)
  Receive Date: 20181214
  Receipt Date: 20181214
  Transmission Date: 20190205
  Serious: Yes (Hospitalization)
  Sender: FDA-Public Use
  Company Number: ES-BAYER-2018-233333

PATIENT
  Age: 60 Year
  Sex: Female

DRUGS (3)
  1. ADIRO 300 MG [Suspect]
     Active Substance: ASPIRIN
     Dosage: 300 MG, QD
     Route: 048
     Dates: start: 20170216, end: 20180228
  2. ATORVASTATINA [ATORVASTATIN] [Concomitant]
     Dosage: 40 MG, QD
     Route: 048
  3. ENALAPRIL [Concomitant]
     Active Substance: ENALAPRIL
     Dosage: 5 MG, QD
     Route: 048

REACTIONS (1)
  - Iron deficiency anaemia [Recovered/Resolved]

NARRATIVE: CASE EVENT DATE: 20170601
